FAERS Safety Report 17244297 (Version 7)
Quarter: 2021Q1

REPORT INFORMATION
  Report Type: Spontaneous
  Country: US (occurrence: US)
  Receive Date: 20200107
  Receipt Date: 20210115
  Transmission Date: 20210419
  Serious: Yes (Other)
  Sender: FDA-Public Use
  Company Number: US-GILEAD-2019-0444758

PATIENT
  Age: 54 Year
  Sex: Male
  Weight: 81.63 kg

DRUGS (53)
  1. ATRIPLA [Suspect]
     Active Substance: EFAVIRENZ\EMTRICITABINE\TENOFOVIR DISOPROXIL FUMARATE
     Indication: HIV INFECTION
     Dosage: UNK
     Route: 048
     Dates: start: 200604, end: 201701
  2. VIREAD [Suspect]
     Active Substance: TENOFOVIR DISOPROXIL FUMARATE
     Indication: HIV INFECTION
     Dosage: UNK
     Route: 048
     Dates: start: 2016, end: 2016
  3. NAMENDA [Concomitant]
     Active Substance: MEMANTINE HYDROCHLORIDE
  4. CORTISONE [Concomitant]
     Active Substance: CORTISONE
  5. TRUVADA [Suspect]
     Active Substance: EMTRICITABINE\TENOFOVIR DISOPROXIL FUMARATE
     Indication: HIV INFECTION
     Dosage: UNK
     Route: 048
     Dates: start: 200604, end: 201405
  6. SYMTUZA [Concomitant]
     Active Substance: COBICISTAT\DARUNAVIR\EMTRICITABINE\TENOFOVIR ALAFENAMIDE
  7. SUBOXONE [Concomitant]
     Active Substance: BUPRENORPHINE HYDROCHLORIDE\NALOXONE HYDROCHLORIDE
  8. DIAZEPAM. [Concomitant]
     Active Substance: DIAZEPAM
  9. GABAPENTIN. [Concomitant]
     Active Substance: GABAPENTIN
  10. TRIUMEQ [Concomitant]
     Active Substance: ABACAVIR SULFATE\DOLUTEGRAVIR SODIUM\LAMIVUDINE
     Indication: HIV INFECTION
  11. TRIMIPRAMINE [Concomitant]
     Active Substance: TRIMIPRAMINE
  12. TRUVADA [Suspect]
     Active Substance: EMTRICITABINE\TENOFOVIR DISOPROXIL FUMARATE
     Dosage: UNK
     Route: 048
     Dates: start: 2006, end: 2017
  13. TRAMADOL. [Concomitant]
     Active Substance: TRAMADOL
  14. IBUPROFEN. [Concomitant]
     Active Substance: IBUPROFEN
  15. ACETAMINOPHEN. [Concomitant]
     Active Substance: ACETAMINOPHEN
  16. ASPIRIN (E.C.) [Concomitant]
     Active Substance: ASPIRIN
  17. BACTRIM [Concomitant]
     Active Substance: SULFAMETHOXAZOLE\TRIMETHOPRIM
  18. DILANTIN [Concomitant]
     Active Substance: PHENYTOIN
  19. PHENOBARBITAL. [Concomitant]
     Active Substance: PHENOBARBITAL
  20. TESTOSTERONE. [Concomitant]
     Active Substance: TESTOSTERONE
  21. CIALIS [Concomitant]
     Active Substance: TADALAFIL
  22. SULFAMETHOXAZOLE [Concomitant]
     Active Substance: SULFAMETHOXAZOLE
  23. ANASTROZOLE. [Concomitant]
     Active Substance: ANASTROZOLE
  24. LITHIUM. [Concomitant]
     Active Substance: LITHIUM
  25. METHYLPHENIDATE. [Concomitant]
     Active Substance: METHYLPHENIDATE
  26. AMITRIPTYLINE [Concomitant]
     Active Substance: AMITRIPTYLINE
  27. PREDNISOLONE. [Concomitant]
     Active Substance: PREDNISOLONE
  28. PREDNISONE. [Concomitant]
     Active Substance: PREDNISONE
  29. ALPRAZOLAM. [Concomitant]
     Active Substance: ALPRAZOLAM
  30. KALETRA [Concomitant]
     Active Substance: LOPINAVIR\RITONAVIR
     Indication: HIV INFECTION
  31. CYMBALTA [Concomitant]
     Active Substance: DULOXETINE HYDROCHLORIDE
  32. AZITHROMYCIN ANHYDROUS. [Concomitant]
     Active Substance: AZITHROMYCIN ANHYDROUS
  33. LIOTHYRONINUM [Concomitant]
  34. SEROQUEL XR [Concomitant]
     Active Substance: QUETIAPINE FUMARATE
  35. METHOCARBAMOL. [Concomitant]
     Active Substance: METHOCARBAMOL
  36. CELEBREX [Concomitant]
     Active Substance: CELECOXIB
  37. TETRACYCLINE [Concomitant]
     Active Substance: TETRACYCLINE
  38. DESCOVY [Concomitant]
     Active Substance: EMTRICITABINE\TENOFOVIR ALAFENAMIDE FUMARATE
     Indication: HIV INFECTION
  39. HYDROCODONE BITARTRATE AND ACETAMINOPHEN [Concomitant]
     Active Substance: ACETAMINOPHEN\HYDROCODONE BITARTRATE
  40. NYAMYC [Concomitant]
     Active Substance: NYSTATIN
  41. AMOXICILLIN. [Concomitant]
     Active Substance: AMOXICILLIN
  42. LOPRAMIDE [Concomitant]
  43. MAGNESIUM OXIDE. [Concomitant]
     Active Substance: MAGNESIUM OXIDE
  44. AMPICILLIN [Concomitant]
     Active Substance: AMPICILLIN
  45. ATRIPLA [Suspect]
     Active Substance: EFAVIRENZ\EMTRICITABINE\TENOFOVIR DISOPROXIL FUMARATE
     Dosage: UNK
     Route: 048
     Dates: start: 2015, end: 2015
  46. LEVOTHYROXINE. [Concomitant]
     Active Substance: LEVOTHYROXINE
  47. ZOLPIDEM [Concomitant]
     Active Substance: ZOLPIDEM TARTRATE
  48. FUROXONE [Concomitant]
     Active Substance: FURAZOLIDONE
  49. BUPROPION HCL [Concomitant]
     Active Substance: BUPROPION HYDROCHLORIDE
  50. PRAZOSIN. [Concomitant]
     Active Substance: PRAZOSIN
  51. CALCIUM [Concomitant]
     Active Substance: CALCIUM
     Indication: PROPHYLAXIS
     Dosage: UNK
  52. PENICILLIN [PENICILLIN NOS] [Concomitant]
     Active Substance: PENICILLIN
  53. SUSTIVA [Concomitant]
     Active Substance: EFAVIRENZ
     Indication: HIV INFECTION

REACTIONS (15)
  - Tooth loss [Unknown]
  - Anhedonia [Unknown]
  - Bone density decreased [Unknown]
  - Renal failure [Unknown]
  - Emotional distress [Unknown]
  - Depression [Not Recovered/Not Resolved]
  - Hypersensitivity [Unknown]
  - Upper limb fracture [Unknown]
  - Osteoporosis [Unknown]
  - Pain [Unknown]
  - Bone density abnormal [Unknown]
  - Osteopenia [Not Recovered/Not Resolved]
  - Economic problem [Unknown]
  - Fracture [Not Recovered/Not Resolved]
  - Anxiety [Not Recovered/Not Resolved]

NARRATIVE: CASE EVENT DATE: 2006
